FAERS Safety Report 11032224 (Version 1)
Quarter: 2015Q2

REPORT INFORMATION
  Report Type: Spontaneous
  Country: US (occurrence: None)
  Receive Date: 20150414
  Receipt Date: 20150414
  Transmission Date: 20150821
  Serious: Yes (Hospitalization)
  Sender: FDA-Public Use
  Company Number: 2820184

PATIENT
  Age: 52 Year
  Sex: Female

DRUGS (2)
  1. ANASTROZOLE. [Concomitant]
     Active Substance: ANASTROZOLE
  2. PACLITAXEL. [Suspect]
     Active Substance: PACLITAXEL
     Indication: BREAST CANCER METASTATIC
     Dosage: 80MG/M 2 MILLIGRAM(S) SQ. METER ( 1 WEEK)

REACTIONS (10)
  - Haemodialysis [None]
  - Acute kidney injury [None]
  - Rhabdomyolysis [None]
  - Lung infiltration [None]
  - Cardiopulmonary failure [None]
  - Tumour lysis syndrome [None]
  - Pneumonia [None]
  - Metabolic encephalopathy [None]
  - Hypotension [None]
  - Liver injury [None]
